FAERS Safety Report 23442019 (Version 2)
Quarter: 2024Q1

REPORT INFORMATION
  Report Type: Report from Study
  Country: US (occurrence: US)
  Receive Date: 20240125
  Receipt Date: 20240205
  Transmission Date: 20240410
  Serious: Yes (Other)
  Sender: FDA-Public Use
  Company Number: US-UCBSA-2023058598

PATIENT
  Sex: Female

DRUGS (3)
  1. CERTOLIZUMAB PEGOL [Suspect]
     Active Substance: CERTOLIZUMAB PEGOL
     Indication: Psoriasis
     Dosage: 400 MILLIGRAM, EV 2 WEEKS(QOW) (WEEK 0, 2, 4), LOADING DOSE
     Route: 058
     Dates: start: 20231122
  2. CERTOLIZUMAB PEGOL [Suspect]
     Active Substance: CERTOLIZUMAB PEGOL
     Dosage: 400 MILLIGRAM, EV 2 WEEKS(QOW), MAINTENANCE DOSE
     Route: 058
  3. RABIES VACCINE [Concomitant]
     Active Substance: RABIES VACCINE
     Indication: Rabies immunisation
     Dosage: UNK
     Dates: start: 20240111

REACTIONS (12)
  - Psoriatic arthropathy [Unknown]
  - Rabies [Not Recovered/Not Resolved]
  - Injection site discomfort [Recovered/Resolved]
  - Injection site swelling [Recovered/Resolved]
  - Burning sensation [Not Recovered/Not Resolved]
  - Hypoaesthesia [Not Recovered/Not Resolved]
  - Nausea [Not Recovered/Not Resolved]
  - Vomiting [Not Recovered/Not Resolved]
  - Migraine [Not Recovered/Not Resolved]
  - Amblyopia [Not Recovered/Not Resolved]
  - Hypersomnia [Not Recovered/Not Resolved]
  - Product use issue [Unknown]

NARRATIVE: CASE EVENT DATE: 20230101
